FAERS Safety Report 13183137 (Version 1)
Quarter: 2017Q1

REPORT INFORMATION
  Report Type: Spontaneous
  Country: JP (occurrence: JP)
  Receive Date: 20170203
  Receipt Date: 20170203
  Transmission Date: 20170428
  Serious: Yes (Other)
  Sender: FDA-Public Use
  Company Number: JP-PFIZER INC-2017017851

PATIENT
  Age: 65 Year
  Sex: Female

DRUGS (3)
  1. TEICOPLANIN [Concomitant]
     Active Substance: TEICOPLANIN
  2. ANAEMETRO 500MG [Suspect]
     Active Substance: METRONIDAZOLE
     Dosage: 1500 MG, DAILY
     Route: 041
  3. WYSTAL [Concomitant]
     Active Substance: CEFOPERAZONE SODIUM\SULBACTAM SODIUM

REACTIONS (4)
  - Optic nerve disorder [Unknown]
  - Endophthalmitis [Unknown]
  - Visual impairment [Unknown]
  - Vision blurred [Unknown]

NARRATIVE: CASE EVENT DATE: 20170116
